FAERS Safety Report 8991951 (Version 2)
Quarter: 2013Q1

REPORT INFORMATION
  Report Type: Report from Study
  Country: PL (occurrence: PL)
  Receive Date: 20121231
  Receipt Date: 20130221
  Transmission Date: 20140127
  Serious: Yes (Life-Threatening, Hospitalization, Congenital Anomaly, Other)
  Sender: FDA-Public Use
  Company Number: PL-ASTELLAS-2012EU011190

PATIENT
  Sex: Female

DRUGS (8)
  1. TACROLIMUS SYSTEMIC [Suspect]
     Indication: FOETAL EXPOSURE DURING PREGNANCY
     Dosage: UNK
     Route: 064
  2. CYCLOSPORINE [Concomitant]
     Indication: FOETAL EXPOSURE DURING PREGNANCY
     Dosage: UNK
     Route: 064
  3. PREDNISOLON                        /00016201/ [Concomitant]
     Indication: FOETAL EXPOSURE DURING PREGNANCY
     Dosage: UNK
     Route: 064
  4. METOCARD [Concomitant]
     Indication: FOETAL EXPOSURE DURING PREGNANCY
     Dosage: UNK
     Route: 064
  5. DOPEGYT [Concomitant]
     Indication: FOETAL EXPOSURE DURING PREGNANCY
     Dosage: UNK
     Route: 064
  6. AMLOZEK [Concomitant]
     Indication: FOETAL EXPOSURE DURING PREGNANCY
     Dosage: UNK
     Route: 064
  7. MEDROL                             /00049601/ [Concomitant]
     Indication: FOETAL EXPOSURE DURING PREGNANCY
     Dosage: UNK
     Route: 064
  8. FALVIT [Concomitant]
     Indication: FOETAL EXPOSURE DURING PREGNANCY
     Dosage: UNK
     Route: 064

REACTIONS (7)
  - Asphyxia [Recovered/Resolved]
  - Premature baby [Unknown]
  - Ventricular septal defect [Unknown]
  - Congenital heart valve disorder [Unknown]
  - Atrial septal defect [Unknown]
  - Congenital inguinal hernia [Unknown]
  - Congenital tongue anomaly [Unknown]
